FAERS Safety Report 5735951-9 (Version None)
Quarter: 2008Q2

REPORT INFORMATION
  Report Type: 
  Country: None (occurrence: None)
  Receive Date: 20080509
  Receipt Date: 20080501
  Transmission Date: 20081010
  Serious: Yes (Other)
  Sender: FDA-Public Use
  Company Number: 2008006405

PATIENT
  Age: 52 Year
  Sex: Male

DRUGS (2)
  1. LISTERINE WHITENING PRE-BRUSH RINSE (NO ACTIVE INGREDIENT) [Suspect]
     Dosage: ONCE, ORAL
     Route: 048
     Dates: start: 20080309, end: 20080309
  2. LIPITOR [Concomitant]

REACTIONS (12)
  - BLOOD PRESSURE INCREASED [None]
  - DYSPNOEA [None]
  - EAR PAIN [None]
  - EYE SWELLING [None]
  - GLOSSODYNIA [None]
  - HYPOAESTHESIA [None]
  - LOCAL SWELLING [None]
  - ORAL DISCOMFORT [None]
  - ORAL MUCOSAL EXFOLIATION [None]
  - PAIN IN JAW [None]
  - PAROTID GLAND ENLARGEMENT [None]
  - SWELLING FACE [None]
